FAERS Safety Report 5018719-0 (Version None)
Quarter: 2006Q2

REPORT INFORMATION
  Report Type: 
  Country: None (occurrence: None)
  Receive Date: 20060606
  Receipt Date: 20060526
  Transmission Date: 20061013
  Serious: Yes (Hospitalization)
  Sender: FDA-Public Use
  Company Number: SE-ROCHE-449542

PATIENT
  Age: 65 Year
  Sex: Male

DRUGS (38)
  1. ZENAPAX [Suspect]
     Route: 042
     Dates: start: 20051113, end: 20051113
  2. ZENAPAX [Suspect]
     Route: 042
     Dates: start: 20051120, end: 20051120
  3. MYCOPHENOLATE MOFETIL [Suspect]
     Route: 042
     Dates: start: 20051113, end: 20051113
  4. MYCOPHENOLATE MOFETIL [Suspect]
     Route: 042
     Dates: start: 20051114, end: 20051117
  5. MYCOPHENOLATE MOFETIL [Suspect]
     Route: 048
     Dates: start: 20051118, end: 20060201
  6. MYCOPHENOLATE MOFETIL [Suspect]
     Route: 048
     Dates: start: 20060202
  7. TACROLIMUS [Suspect]
     Route: 048
     Dates: start: 20051113, end: 20051114
  8. TACROLIMUS [Suspect]
     Dosage: DOSES ADJUSTED TO REACH PRE-DEFINED TARGET LEVELS.
     Route: 048
     Dates: start: 20051118
  9. METHYLPREDNISOLONE [Suspect]
     Route: 065
     Dates: start: 20051113, end: 20051113
  10. METHYLPREDNISOLONE [Suspect]
     Dosage: TREATMENT OF REJECTION
     Route: 065
     Dates: start: 20051126, end: 20051126
  11. PREDNISOLONE [Suspect]
     Dosage: DOSES TAPERED ACCORDING TO LOCAL PROTOCOL
     Route: 065
     Dates: start: 20051113, end: 20051126
  12. PREDNISOLONE [Suspect]
     Dosage: TREATMENT OF REJECTION
     Route: 065
     Dates: start: 20051127, end: 20051129
  13. PREDNISOLONE [Suspect]
     Dosage: NEW MAINTENANCE DOSE BECAUSE OF REJECTION
     Route: 065
     Dates: start: 20051130
  14. FLUNITRAZEPAM [Concomitant]
     Indication: PROPHYLAXIS
     Dates: start: 20051113, end: 20051204
  15. PROPOFOL [Concomitant]
     Indication: ANAESTHESIA
     Dates: start: 20051113, end: 20051114
  16. FENTANYL [Concomitant]
     Indication: ANALGESIC THERAPY
     Dates: start: 20051113, end: 20051114
  17. ROCURONIUM [Concomitant]
     Dosage: INDICATION REPORTED AS MUSCLE RELAXATION DUE TO LIVER TRANSPLANT
     Dates: start: 20051113, end: 20051113
  18. EFEDRIN [Concomitant]
     Indication: BRONCHOSPASM
     Dates: start: 20051113, end: 20051113
  19. DOPAMIN [Concomitant]
     Dosage: INDICATION: PRESSURE AGENT
     Dates: start: 20051113, end: 20051113
  20. APROTININ [Concomitant]
     Dosage: INDICATION: ANTIFIBRINOLYTICUM
     Dates: start: 20051113, end: 20051113
  21. NORADRENALINE [Concomitant]
     Dosage: INDICATION: PRESSURE AGENT
     Dates: start: 20051113, end: 20051114
  22. CALCIUM GLUBIONATE [Concomitant]
     Indication: PROPHYLAXIS
     Dates: start: 20051113, end: 20051113
  23. POTASSIUM [Concomitant]
     Indication: PROPHYLAXIS
     Dates: start: 20051113, end: 20051114
  24. INSULIN [Concomitant]
     Indication: PROPHYLAXIS
     Dates: start: 20051113, end: 20051115
  25. MEROPENEM [Concomitant]
     Indication: INFECTION PROPHYLAXIS
     Dates: start: 20051113, end: 20051119
  26. FUROSEMIDE [Concomitant]
     Dosage: INDICATION: DIURETIC, PROPHYLAXIS
     Dates: start: 20051113, end: 20051127
  27. KETOBEMIDON [Concomitant]
     Indication: PROPHYLAXIS
     Dates: start: 20051114, end: 20051114
  28. ESOMEPRAZOLE [Concomitant]
     Indication: PROPHYLAXIS
     Dates: start: 20051114, end: 20051204
  29. BLOOD TRANSFUSION [Concomitant]
     Dosage: INDICATION: VOLUVEN REPLACEMENT
     Dates: start: 20051113, end: 20051114
  30. PLASMA [Concomitant]
     Dosage: INDICATION: VOLUVEN REPLACEMENT
     Dates: start: 20051113, end: 20051113
  31. MORPHINE [Concomitant]
     Indication: PROPHYLAXIS
     Dosage: DRUG NAME REPORTED AS MORFIN
     Dates: start: 20051115, end: 20051116
  32. PARACETAMOL [Concomitant]
     Indication: PROPHYLAXIS
     Dates: start: 20051113, end: 20051203
  33. VALGANCICLOVIR HCL [Concomitant]
     Indication: INFECTION PROPHYLAXIS
     Dates: start: 20051123, end: 20060302
  34. PENTAMIDIN [Concomitant]
     Indication: INFECTION PROPHYLAXIS
     Dates: start: 20051122, end: 20060123
  35. RANITIDINE HCL [Concomitant]
     Indication: PROPHYLAXIS
     Dates: start: 20051205
  36. KLEMASTIN [Concomitant]
     Dates: start: 20051202, end: 20060228
  37. GANCICLOVIR [Concomitant]
     Indication: INFECTION PROPHYLAXIS
     Dates: start: 20051204, end: 20060205
  38. DALTEPARIN [Concomitant]
     Indication: PROPHYLAXIS
     Dates: start: 20051116, end: 20051122

REACTIONS (1)
  - CYTOMEGALOVIRUS INFECTION [None]
